FAERS Safety Report 8880069 (Version 1)
Quarter: 2012Q4

REPORT INFORMATION
  Report Type: 
  Country: US (occurrence: US)
  Receive Date: 20121101
  Receipt Date: 20121101
  Transmission Date: 20130627
  Serious: Yes (Other)
  Sender: FDA-Public Use
  Company Number: US-SHIRE-ALL1-2012-05199

PATIENT
  Age: 16 Year
  Sex: Female
  Weight: 68.93 kg

DRUGS (3)
  1. VYVANSE [Suspect]
     Indication: ATTENTION DEFICIT/HYPERACTIVITY DISORDER
     Dosage: 20 mg, 1x/day:qd
     Route: 048
     Dates: start: 201202
  2. VYVANSE [Suspect]
     Dosage: 40 mg, 1x/day:qd
     Route: 048
     Dates: start: 201208, end: 20120922
  3. CEPHALEXIN                         /00145501/ [Concomitant]
     Indication: ACNE
     Dosage: 500 mg, 1x/day:qd
     Route: 048
     Dates: start: 201207

REACTIONS (4)
  - Flat affect [Not Recovered/Not Resolved]
  - Depressed mood [Unknown]
  - Disturbance in attention [Not Recovered/Not Resolved]
  - Social avoidant behaviour [Recovering/Resolving]
